FAERS Safety Report 20848363 (Version 1)
Quarter: 2022Q2

REPORT INFORMATION
  Report Type: Spontaneous
  Country: US (occurrence: None)
  Receive Date: 20220518
  Receipt Date: 20220518
  Transmission Date: 20220721
  Serious: Yes (Hospitalization)
  Sender: FDA-Public Use
  Company Number: None

PATIENT
  Sex: Female

DRUGS (1)
  1. DEFERASIROX [Suspect]
     Active Substance: DEFERASIROX
     Indication: Iron metabolism disorder
     Route: 048
     Dates: start: 20200117

REACTIONS (3)
  - Hypersensitivity [None]
  - Ulcer haemorrhage [None]
  - Therapy interrupted [None]
